FAERS Safety Report 8923044 (Version 6)
Quarter: 2013Q3

REPORT INFORMATION
  Report Type: Spontaneous
  Country: US (occurrence: US)
  Receive Date: 20121123
  Receipt Date: 20130731
  Transmission Date: 20140515
  Serious: Yes (Hospitalization, Other)
  Sender: FDA-Public Use
  Company Number: PHEH2012US022755

PATIENT
  Age: 39 Year
  Sex: Female
  Weight: 76.64 kg

DRUGS (14)
  1. GILENYA [Suspect]
     Indication: RELAPSING-REMITTING MULTIPLE SCLEROSIS
     Dosage: 0.5 MG, QD
     Route: 048
     Dates: start: 20120313, end: 20121119
  2. GILENYA [Suspect]
     Dosage: 0.5 MG, QD
     Route: 048
     Dates: start: 201301, end: 20130723
  3. LIORESAL [Concomitant]
     Dosage: 2 DF, QD4SDO
     Route: 048
  4. CALCIUM CARBONATE [Concomitant]
     Dosage: 1 DF, QD
     Route: 048
  5. CHOLECALCIFEROL [Concomitant]
     Dosage: 1 DF, QD
     Route: 048
  6. DROSPIRENONE W/ETHINYLESTRADIOL [Concomitant]
     Dosage: 1 DF, QD
     Route: 048
  7. ALLEGRA-D [Concomitant]
     Dosage: 1 DF, QD
     Route: 048
  8. NORCO [Concomitant]
     Dosage: 1 DF, UNK
     Route: 048
  9. PRINIVIL [Concomitant]
     Dosage: 1 DF, QD
     Route: 048
  10. ZESTRIL [Concomitant]
  11. THERAGRAN [Concomitant]
     Dosage: 1 DF, QD
     Route: 048
  12. EFFEXOR-XR [Concomitant]
     Dosage: 1 DF, QD
     Route: 048
  13. CYANOCOBALAMINE [Concomitant]
     Dosage: 500 UG, QD
     Route: 048
  14. FLEXERIL [Concomitant]
     Dosage: 5 MG, AT BED TIME
     Route: 048

REACTIONS (21)
  - Urosepsis [Recovering/Resolving]
  - Body temperature increased [Recovering/Resolving]
  - Suprapubic pain [Recovering/Resolving]
  - Urinary tract infection [Recovering/Resolving]
  - Cystitis [Unknown]
  - Multiple sclerosis relapse [Not Recovered/Not Resolved]
  - Central nervous system lesion [Recovering/Resolving]
  - Muscular weakness [Unknown]
  - Muscle spasticity [Not Recovered/Not Resolved]
  - Gait spastic [Not Recovered/Not Resolved]
  - Fatigue [Unknown]
  - Slow speech [Unknown]
  - Cognitive disorder [Unknown]
  - Bladder dysfunction [Unknown]
  - Bladder spasm [Recovering/Resolving]
  - Gait disturbance [Not Recovered/Not Resolved]
  - Fall [Unknown]
  - Dizziness [Unknown]
  - Incontinence [Recovering/Resolving]
  - Back pain [Recovering/Resolving]
  - Drug ineffective [Unknown]
